FAERS Safety Report 8790228 (Version 3)
Quarter: 2012Q4

REPORT INFORMATION
  Report Type: 
  Country: US (occurrence: US)
  Receive Date: 20120917
  Receipt Date: 20121114
  Transmission Date: 20130627
  Serious: No
  Sender: FDA-Public Use
  Company Number: US-PFIZER INC-2012228409

PATIENT
  Sex: Female

DRUGS (2)
  1. DILANTIN [Suspect]
     Dosage: Unk
  2. PHENYTOIN SODIUM [Suspect]
     Dosage: UNK

REACTIONS (1)
  - Dizziness [Unknown]
